FAERS Safety Report 12133211 (Version 1)
Quarter: 2016Q1

REPORT INFORMATION
  Report Type: Spontaneous
  Country: US (occurrence: US)
  Receive Date: 20160301
  Receipt Date: 20160301
  Transmission Date: 20160526
  Serious: Yes (Hospitalization)
  Sender: FDA-Public Use
  Company Number: US-BEH-2016059231

PATIENT
  Age: 30 Year
  Sex: Female
  Weight: 65 kg

DRUGS (26)
  1. MULTIVITAMINS [Concomitant]
     Active Substance: VITAMINS
  2. REGLAN [Concomitant]
     Active Substance: METOCLOPRAMIDE HYDROCHLORIDE
  3. HIZENTRA [Suspect]
     Active Substance: HUMAN IMMUNOGLOBULIN G
     Indication: CONGENITAL HYPOGAMMAGLOBULINAEMIA
     Route: 058
     Dates: start: 20120116
  4. AMITRIPTYLINE [Concomitant]
     Active Substance: AMITRIPTYLINE
  5. LIDOCAINE. [Concomitant]
     Active Substance: LIDOCAINE
  6. FOSAMAX [Concomitant]
     Active Substance: ALENDRONATE SODIUM
  7. DITROPAN [Concomitant]
     Active Substance: OXYBUTYNIN CHLORIDE
  8. HIPREX [Concomitant]
     Active Substance: METHENAMINE HIPPURATE
  9. NEURONTIN [Concomitant]
     Active Substance: GABAPENTIN
  10. DULCOLAX NOS [Concomitant]
     Active Substance: BISACODYL OR DOCUSATE SODIUM
  11. DIPHENHYDRAMINE. [Concomitant]
     Active Substance: DIPHENHYDRAMINE
  12. TRIMETHOPRIM. [Concomitant]
     Active Substance: TRIMETHOPRIM
  13. CALCIUM [Concomitant]
     Active Substance: CALCIUM
  14. VITAMIN B COMPLEX [Concomitant]
     Active Substance: CYANOCOBALAMIN\DEXPANTHENOL\NIACINAMIDE\PYRIDOXINE HYDROCHLORIDE\RIBOFLAVIN 5^-PHOSPHATE SODIUM\THIAMINE HYDROCHLORIDE\VITAMIN B COMPLEX
  15. LYRICA [Concomitant]
     Active Substance: PREGABALIN
  16. BACLOFEN. [Concomitant]
     Active Substance: BACLOFEN
  17. NEXIUM [Concomitant]
     Active Substance: ESOMEPRAZOLE MAGNESIUM
  18. ACETAMINOPHEN. [Concomitant]
     Active Substance: ACETAMINOPHEN
  19. EPIPEN [Concomitant]
     Active Substance: EPINEPHRINE
  20. SOMA [Concomitant]
     Active Substance: CARISOPRODOL
  21. RESTASIS [Concomitant]
     Active Substance: CYCLOSPORINE
  22. KEPPRA [Concomitant]
     Active Substance: LEVETIRACETAM
  23. TRAZODONE [Concomitant]
     Active Substance: TRAZODONE HYDROCHLORIDE
  24. HIZENTRA [Suspect]
     Active Substance: HUMAN IMMUNOGLOBULIN G
     Route: 058
     Dates: start: 20120116
  25. LMX [Concomitant]
     Active Substance: LIDOCAINE
  26. PRAVACHOL [Concomitant]
     Active Substance: PRAVASTATIN SODIUM

REACTIONS (1)
  - Femur fracture [Unknown]

NARRATIVE: CASE EVENT DATE: 20160209
